FAERS Safety Report 8586940-0 (Version None)
Quarter: 2012Q3

REPORT INFORMATION
  Report Type: 
  Country: None (occurrence: None)
  Receive Date: 20120810
  Receipt Date: 20120808
  Transmission Date: 20120928
  Serious: No
  Sender: FDA-Public Use
  Company Number: US-PFIZER INC-2012194464

PATIENT
  Age: 49 Year
  Sex: Female
  Weight: 66 kg

DRUGS (2)
  1. GABAPENTIN [Suspect]
     Indication: NEURALGIA
     Dosage: 1200 MG, 3X/DAY
     Dates: start: 20051015
  2. GABAPENTIN [Suspect]
     Indication: SPINAL CORD INJURY

REACTIONS (1)
  - DRUG INEFFECTIVE [None]
